FAERS Safety Report 6348392-0 (Version None)
Quarter: 2009Q3

REPORT INFORMATION
  Report Type: 
  Country: None (occurrence: None)
  Receive Date: 20090911
  Receipt Date: 20071115
  Transmission Date: 20100115
  Serious: Yes (Other)
  Sender: FDA-Public Use
  Company Number: US-ASTRAZENECA-2006UW11689

PATIENT
  Age: 632 Month
  Sex: Female
  Weight: 86.2 kg

DRUGS (17)
  1. SEROQUEL [Suspect]
     Indication: BIPOLAR DISORDER
     Dosage: 100-1000 MG EVERY DAY
     Route: 048
     Dates: start: 20021007
  2. SEROQUEL [Suspect]
     Indication: DEPRESSION
     Dosage: 100-1000 MG EVERY DAY
     Route: 048
     Dates: start: 20021007
  3. SEROQUEL [Suspect]
     Indication: ANXIETY
     Dosage: 100-1000 MG EVERY DAY
     Route: 048
     Dates: start: 20021007
  4. SEROQUEL [Suspect]
     Dosage: 500 - 1000 MG
     Route: 048
     Dates: start: 20040101
  5. SEROQUEL [Suspect]
     Dosage: 500 - 1000 MG
     Route: 048
     Dates: start: 20040101
  6. SEROQUEL [Suspect]
     Dosage: 500 - 1000 MG
     Route: 048
     Dates: start: 20040101
  7. CLOZARIL [Concomitant]
     Dates: start: 20030101
  8. KLONOPIN [Concomitant]
     Dosage: 1.0 MG- 3.0 MG EVERY DAY
     Dates: start: 20021007
  9. AMBIEN [Concomitant]
     Indication: INSOMNIA
     Dates: start: 20021007
  10. EFFEXOR [Concomitant]
     Dosage: 100-225 MG DAILY
     Dates: start: 20021007
  11. NEURONTIN [Concomitant]
     Dates: start: 20021007
  12. AVANDIA [Concomitant]
     Dates: start: 20050618
  13. LEXAPRO [Concomitant]
     Dates: start: 20050618
  14. METOPROLOL TARTRATE [Concomitant]
     Dosage: 35-200 MG EVERY DAY
     Route: 048
     Dates: start: 20050618
  15. ZOCOR [Concomitant]
     Route: 048
     Dates: start: 20070713
  16. LANTUS [Concomitant]
     Dosage: 55-55 UNITS DAILY
     Dates: start: 20070713
  17. ASPIRIN [Concomitant]
     Route: 048
     Dates: start: 20070713

REACTIONS (10)
  - CEREBRAL INFARCTION [None]
  - CEREBROVASCULAR ACCIDENT [None]
  - DIABETES MELLITUS [None]
  - DIABETES MELLITUS INADEQUATE CONTROL [None]
  - DYSARTHRIA [None]
  - DYSPHAGIA [None]
  - HEMIPARESIS [None]
  - PANCREATITIS [None]
  - PANCREATITIS ACUTE [None]
  - TYPE 2 DIABETES MELLITUS [None]
